FAERS Safety Report 22133801 (Version 2)
Quarter: 2023Q2

REPORT INFORMATION
  Report Type: Report from Study
  Country: US (occurrence: US)
  Receive Date: 20230324
  Receipt Date: 20230410
  Transmission Date: 20230721
  Serious: Yes (Other)
  Sender: FDA-Public Use
  Company Number: US-ABBVIE-4700973

PATIENT
  Age: 77 Year
  Sex: Male

DRUGS (1)
  1. SKYRIZI [Suspect]
     Active Substance: RISANKIZUMAB-RZAA
     Indication: Psoriasis
     Route: 058
     Dates: start: 20220615

REACTIONS (3)
  - Intervertebral disc disorder [Recovering/Resolving]
  - Hypoaesthesia [Recovering/Resolving]
  - Cervical cord compression [Recovering/Resolving]

NARRATIVE: CASE EVENT DATE: 20230301
